FAERS Safety Report 9743182 (Version 2)
Quarter: 2013Q4

REPORT INFORMATION
  Report Type: Spontaneous
  Country: US (occurrence: US)
  Receive Date: 20131210
  Receipt Date: 20131210
  Transmission Date: 20140711
  Serious: No
  Sender: FDA-Public Use
  Company Number: US-GILEAD-2009-0024347

PATIENT
  Sex: Female
  Weight: 57.15 kg

DRUGS (20)
  1. LETAIRIS [Suspect]
     Indication: PULMONARY ARTERIAL HYPERTENSION
     Route: 048
  2. LETAIRIS [Suspect]
     Route: 048
     Dates: start: 20090225
  3. ZEMPLAR [Concomitant]
  4. EPIDRIN [Concomitant]
  5. PILOCAR [Concomitant]
  6. SIMVASTATIN [Concomitant]
  7. PLAVIX [Concomitant]
  8. AMBIEN [Concomitant]
  9. LANTUS [Concomitant]
  10. NOVOLOG [Concomitant]
  11. ZANTAC [Concomitant]
  12. RENAGEL [Concomitant]
  13. PILOCARPINE [Concomitant]
  14. SODIUM BICARBONATE [Concomitant]
  15. IRON [Concomitant]
  16. VITAMIN D [Concomitant]
  17. FISH OIL [Concomitant]
  18. ZOCOR [Concomitant]
  19. INSULIN [Concomitant]
  20. COUMADIN [Concomitant]

REACTIONS (3)
  - Hypotension [Recovering/Resolving]
  - Dizziness [Recovering/Resolving]
  - Atrial fibrillation [Unknown]
